FAERS Safety Report 7010921-1 (Version None)
Quarter: 2010Q3

REPORT INFORMATION
  Report Type: 
  Country: None (occurrence: None)
  Receive Date: 20100923
  Receipt Date: 20100923
  Transmission Date: 20110219
  Serious: Yes (Death)
  Sender: FDA-Public Use
  Company Number: None

PATIENT
  Sex: Female
  Weight: 76.6579 kg

DRUGS (3)
  1. LAMOTRIGINE [Suspect]
     Indication: EPILEPSY
     Dosage: 200 AM / 150 PM
     Dates: start: 20090203
  2. TOPIRAMATE [Suspect]
     Indication: LENNOX-GASTAUT SYNDROME
     Dosage: 100 BID
     Dates: start: 20070901
  3. CLORAZEPATE DIPOTASSIUM [Concomitant]

REACTIONS (5)
  - APLASTIC ANAEMIA [None]
  - NEUTROPENIA [None]
  - NORMOCHROMIC NORMOCYTIC ANAEMIA [None]
  - REFUSAL OF TREATMENT BY PATIENT [None]
  - THROMBOCYTOPENIA [None]
